FAERS Safety Report 8384840-2 (Version None)
Quarter: 2012Q2

REPORT INFORMATION
  Report Type: 
  Country: None (occurrence: None)
  Receive Date: 20120524
  Receipt Date: 20120515
  Transmission Date: 20120825
  Serious: Yes (Hospitalization)
  Sender: FDA-Public Use
  Company Number: US-MPIJNJ-2012-03517

PATIENT
  Age: 56 Year
  Sex: Male

DRUGS (6)
  1. VELCADE [Suspect]
     Indication: MULTIPLE MYELOMA
     Dosage: 1.3 MG/M2, CYCLIC
     Route: 042
     Dates: start: 20110902, end: 20111119
  2. CYTOXAN [Suspect]
     Indication: MULTIPLE MYELOMA
     Dosage: 200 MG/M2, CYCLIC
     Route: 042
     Dates: start: 20110902, end: 20111119
  3. DIGOXIN [Concomitant]
     Dosage: UNK
     Route: 065
     Dates: start: 20111101
  4. REVLIMID [Suspect]
     Indication: MULTIPLE MYELOMA
     Dosage: 15 MG, CYCLIC
     Route: 048
     Dates: start: 20110902, end: 20111119
  5. DECADRON [Suspect]
     Indication: MULTIPLE MYELOMA
     Dosage: 40 MG, 1/WEEK
     Route: 065
     Dates: start: 20110902, end: 20111119
  6. DIGOXIN [Concomitant]
     Indication: PRODUCT USED FOR UNKNOWN INDICATION
     Dosage: UNK
     Dates: end: 20111001

REACTIONS (3)
  - ASTHENIA [None]
  - DYSPNOEA [None]
  - PALPITATIONS [None]
